FAERS Safety Report 4544841-9 (Version None)
Quarter: 2005Q1

REPORT INFORMATION
  Report Type: 
  Country: None (occurrence: None)
  Receive Date: 20050105
  Receipt Date: 20041229
  Transmission Date: 20050727
  Serious: Yes (Hospitalization, Disabling)
  Sender: FDA-Public Use
  Company Number: ES-MERCK-0412ESP00045

PATIENT
  Age: 47 Year
  Sex: Female
  Weight: 53 kg

DRUGS (1)
  1. VIOXX [Suspect]
     Indication: ROAD TRAFFIC ACCIDENT
     Route: 048
     Dates: start: 20000101, end: 20010101

REACTIONS (7)
  - DIARRHOEA [None]
  - FAECAL INCONTINENCE [None]
  - GASTROINTESTINAL DISORDER [None]
  - INTESTINAL POLYP [None]
  - LIVER DISORDER [None]
  - RENAL DISORDER [None]
  - WEIGHT INCREASED [None]
